FAERS Safety Report 15082044 (Version 1)
Quarter: 2018Q3

REPORT INFORMATION
  Report Type: Spontaneous
  Country: AT (occurrence: AT)
  Receive Date: 20180628
  Receipt Date: 20180628
  Transmission Date: 20181010
  Serious: Yes (Hospitalization)
  Sender: FDA-Public Use
  Company Number: AT-TEVA-2018-AT-916742

PATIENT
  Age: 34 Year
  Sex: Male

DRUGS (1)
  1. IBUPROFEN ACTAVIS 600 MG FILMTABLETTEN [Suspect]
     Active Substance: IBUPROFEN
     Indication: OROPHARYNGEAL PAIN
     Route: 048
     Dates: start: 20180330, end: 20180330

REACTIONS (1)
  - Type IV hypersensitivity reaction [Recovered/Resolved]

NARRATIVE: CASE EVENT DATE: 20180330
